FAERS Safety Report 4623371-X (Version None)
Quarter: 2005Q1

REPORT INFORMATION
  Report Type: 
  Country: None (occurrence: None)
  Receive Date: 20050330
  Receipt Date: 20050128
  Transmission Date: 20050727
  Serious: Yes (Life-Threatening, Hospitalization)
  Sender: FDA-Public Use
  Company Number: GB-MERCK-0502GBR00009

PATIENT
  Age: 76 Year
  Sex: Female

DRUGS (2)
  1. COZAAR [Concomitant]
     Indication: BLOOD PRESSURE INCREASED
     Route: 048
  2. FOSAMAX [Suspect]
     Indication: OSTEOPOROSIS
     Route: 048

REACTIONS (2)
  - OESOPHAGEAL RUPTURE [None]
  - OESOPHAGEAL ULCER [None]
